FAERS Safety Report 22633321 (Version 1)
Quarter: 2023Q2

REPORT INFORMATION
  Report Type: Spontaneous
  Country: US (occurrence: US)
  Receive Date: 20230623
  Receipt Date: 20230623
  Transmission Date: 20230721
  Serious: No
  Sender: FDA-Public Use
  Company Number: US-APOTEX-2023AP003569

PATIENT
  Age: 81 Year
  Sex: Female

DRUGS (2)
  1. DULOXETINE [Suspect]
     Active Substance: DULOXETINE
     Indication: Anxiety
     Dosage: 20 MILLIGRAM, QD
     Route: 065
  2. DULOXETINE [Suspect]
     Active Substance: DULOXETINE
     Indication: Major depression

REACTIONS (4)
  - Paranoia [Recovering/Resolving]
  - Emotional distress [Recovering/Resolving]
  - Perseveration [Recovering/Resolving]
  - Condition aggravated [Recovering/Resolving]
